FAERS Safety Report 7701368-0 (Version None)
Quarter: 2011Q3

REPORT INFORMATION
  Report Type: 
  Country: None (occurrence: None)
  Receive Date: 20110822
  Receipt Date: 20110812
  Transmission Date: 20111222
  Serious: Yes (Other)
  Sender: FDA-Public Use
  Company Number: DE-AMGEN-DEUSP2010000675

PATIENT
  Sex: Female

DRUGS (18)
  1. ANTI PHOSPHAT [Concomitant]
  2. LACTULOSE STADA [Concomitant]
  3. ZINKAMIN-FALK [Concomitant]
  4. ENOXAPARIN SODIUM [Concomitant]
  5. TRYASOL CODEIN [Concomitant]
  6. SPIRONOLACTONE [Concomitant]
  7. OMEPRAZOLE [Concomitant]
  8. RENVELA [Concomitant]
  9. TEPILTA                            /00115701/ [Concomitant]
  10. CHOLSPASMIN [Concomitant]
  11. BICANORM                           /00049401/ [Concomitant]
  12. NOVAMINSULFON [Concomitant]
  13. PROLIA [Suspect]
     Indication: OSTEOPOROSIS POSTMENOPAUSAL
     Dosage: 60 MG, ONE TIME DOSE
     Route: 058
     Dates: start: 20100813
  14. KALINOR                            /00031402/ [Concomitant]
  15. VITARENAL [Concomitant]
  16. EFFORTIL PLUS [Concomitant]
  17. IBUPROFEN [Concomitant]
  18. CLINDAMYCIN [Concomitant]

REACTIONS (2)
  - BLOOD PARATHYROID HORMONE INCREASED [None]
  - BLOOD CALCIUM DECREASED [None]
